FAERS Safety Report 11717586 (Version 2)
Quarter: 2015Q4

REPORT INFORMATION
  Report Type: Report from Study
  Country: FR (occurrence: FR)
  Receive Date: 20151110
  Receipt Date: 20151119
  Transmission Date: 20160304
  Serious: Yes (Death, Other)
  Sender: FDA-Public Use
  Company Number: FR-BEH-2015055392

PATIENT
  Sex: Male

DRUGS (3)
  1. INTRAVENOUS IMMUNOGLOBULIN [Suspect]
     Active Substance: HUMAN IMMUNOGLOBULIN G
     Indication: TRANSPLANT REJECTION
  2. METHYLPREDNISOLONE. [Suspect]
     Active Substance: METHYLPREDNISOLONE
     Route: 042
  3. PLASMAPHERESIS [Suspect]
     Active Substance: UNSPECIFIED INGREDIENT
     Dosage: 7 CYCLES

REACTIONS (2)
  - Transplant rejection [Fatal]
  - Drug ineffective for unapproved indication [Fatal]
